FAERS Safety Report 4653551-9 (Version None)
Quarter: 2005Q2

REPORT INFORMATION
  Report Type: 
  Country: None (occurrence: None)
  Receive Date: 20050404
  Receipt Date: 20041110
  Transmission Date: 20051028
  Serious: No
  Sender: FDA-Public Use
  Company Number: USA041183752

PATIENT
  Sex: Male

DRUGS (2)
  1. CYMBALTA [Suspect]
     Dosage: 60 MG DAY
     Dates: start: 20040101
  2. SERZONE [Concomitant]

REACTIONS (2)
  - PARAESTHESIA ORAL [None]
  - SALIVARY HYPERSECRETION [None]
